FAERS Safety Report 13439687 (Version 2)
Quarter: 2017Q2

REPORT INFORMATION
  Report Type: Spontaneous
  Country: CA (occurrence: CA)
  Receive Date: 20170413
  Receipt Date: 20170510
  Transmission Date: 20170830
  Serious: Yes (Hospitalization)
  Sender: FDA-Public Use
  Company Number: CA-BAXTER-2017BAX015683

PATIENT
  Age: 61 Year
  Sex: Female
  Weight: 84.8 kg

DRUGS (48)
  1. PROCYTOX (CYCLOPHOSPHAMIDE) 2000MG/VIAL [Suspect]
     Active Substance: CYCLOPHOSPHAMIDE
     Route: 042
     Dates: start: 20170206
  2. PROCYTOX (CYCLOPHOSPHAMIDE) 2000MG/VIAL [Suspect]
     Active Substance: CYCLOPHOSPHAMIDE
     Route: 042
     Dates: start: 20170221
  3. DOXORUBICIN ACCORD [Suspect]
     Active Substance: DOXORUBICIN HYDROCHLORIDE
     Route: 042
     Dates: start: 20170221
  4. ONDANSETRON [Suspect]
     Active Substance: ONDANSETRON
     Dosage: SUPPORTIVE MEDICATION, 12 HOURS AFTER CHEMO
     Route: 048
  5. ONDANSETRON [Suspect]
     Active Substance: ONDANSETRON
     Dosage: SUPPORTIVE MEDICATION BEFORE CHEMO
     Route: 048
     Dates: start: 20170206
  6. APREPITANT. [Suspect]
     Active Substance: APREPITANT
     Route: 048
     Dates: start: 20170110, end: 20170111
  7. APREPITANT. [Suspect]
     Active Substance: APREPITANT
     Route: 048
     Dates: start: 20170222, end: 20170223
  8. PEGFILGRASTIM [Suspect]
     Active Substance: PEGFILGRASTIM
     Route: 058
     Dates: start: 20170426
  9. PREDNISONE. [Suspect]
     Active Substance: PREDNISONE
     Dosage: FOR 3 DAYS
     Route: 065
  10. PROCYTOX (CYCLOPHOSPHAMIDE) 2000MG/VIAL [Suspect]
     Active Substance: CYCLOPHOSPHAMIDE
     Indication: BREAST CANCER
     Route: 042
     Dates: start: 20170109
  11. DOXORUBICIN ACCORD [Suspect]
     Active Substance: DOXORUBICIN HYDROCHLORIDE
     Indication: BREAST CANCER
     Route: 042
     Dates: start: 20170109
  12. ONDANSETRON [Suspect]
     Active Substance: ONDANSETRON
     Dosage: SUPPORTIVE MEDICATION BEFORE CHEMO
     Route: 048
     Dates: start: 20170123
  13. APREPITANT. [Suspect]
     Active Substance: APREPITANT
     Dosage: BEFORE CYCLOPHOSPHAMIDE AND DOXORUBICIN TREATMENT
     Route: 048
     Dates: start: 20170206
  14. APREPITANT. [Suspect]
     Active Substance: APREPITANT
     Route: 048
     Dates: start: 20170124, end: 20170125
  15. PEGFILGRASTIM [Suspect]
     Active Substance: PEGFILGRASTIM
     Route: 058
     Dates: start: 20170329
  16. DEXAMETHASONE. [Concomitant]
     Active Substance: DEXAMETHASONE
     Route: 048
     Dates: start: 20170409, end: 20170410
  17. TRASTUZUMAB [Suspect]
     Active Substance: TRASTUZUMAB
     Indication: BREAST CANCER
     Route: 065
  18. ONDANSETRON [Suspect]
     Active Substance: ONDANSETRON
     Indication: SUPPORTIVE CARE
     Dosage: SUPPORTIVE MEDICATION BEFORE CHEMO
     Route: 048
     Dates: start: 20170109
  19. APREPITANT. [Suspect]
     Active Substance: APREPITANT
     Indication: SUPPORTIVE CARE
     Dosage: BEFORE CYCLOPHOSPHAMIDE AND DOXORUBICIN TREATMENT
     Route: 048
     Dates: start: 20170109
  20. PEGFILGRASTIM [Suspect]
     Active Substance: PEGFILGRASTIM
     Route: 058
     Dates: start: 20170223
  21. DEXAMETHASONE. [Concomitant]
     Active Substance: DEXAMETHASONE
     Indication: SUPPORTIVE CARE
     Route: 048
     Dates: start: 20170326, end: 20170327
  22. VITAMIN D [Concomitant]
     Active Substance: CHOLECALCIFEROL
     Indication: PRODUCT USED FOR UNKNOWN INDICATION
     Route: 048
  23. HYDROMORPHONE [Concomitant]
     Active Substance: HYDROMORPHONE
     Indication: PRODUCT USED FOR UNKNOWN INDICATION
     Dosage: ONCE EVERY 4 HOURS
     Route: 048
     Dates: start: 20170424
  24. DOXORUBICIN ACCORD [Suspect]
     Active Substance: DOXORUBICIN HYDROCHLORIDE
     Route: 042
     Dates: start: 20170123
  25. ONDANSETRON [Suspect]
     Active Substance: ONDANSETRON
     Dosage: SUPPORTIVE MEDICATION, 12 HOURS AFTER CHEMO
     Route: 048
  26. ONDANSETRON [Suspect]
     Active Substance: ONDANSETRON
     Dosage: SUPPORTIVE MEDICATION, 12 HOURS AFTER CHEMO
     Route: 048
  27. PEGFILGRASTIM [Suspect]
     Active Substance: PEGFILGRASTIM
     Route: 058
     Dates: start: 20170412
  28. LEVAQUIN [Suspect]
     Active Substance: LEVOFLOXACIN
     Indication: ADVERSE EVENT
     Route: 048
     Dates: start: 20170307
  29. TAMIFLU [Suspect]
     Active Substance: OSELTAMIVIR PHOSPHATE
     Indication: ADVERSE EVENT
     Route: 065
     Dates: start: 20170307
  30. DOXORUBICIN ACCORD [Suspect]
     Active Substance: DOXORUBICIN HYDROCHLORIDE
     Route: 042
     Dates: start: 20170206
  31. ONDANSETRON [Suspect]
     Active Substance: ONDANSETRON
     Dosage: SUPPORTIVE MEDICATION, 12 HOURS AFTER CHEMO
     Route: 048
  32. PREDNISONE. [Suspect]
     Active Substance: PREDNISONE
     Indication: ADVERSE EVENT
     Route: 065
     Dates: start: 20170307
  33. CITALOPRAM [Concomitant]
     Active Substance: CITALOPRAM HYDROBROMIDE
     Indication: PRODUCT USED FOR UNKNOWN INDICATION
     Route: 048
  34. ACETAMINOPHEN. [Concomitant]
     Active Substance: ACETAMINOPHEN
     Indication: PRODUCT USED FOR UNKNOWN INDICATION
     Route: 048
  35. NAPROXEN. [Concomitant]
     Active Substance: NAPROXEN
     Indication: PRODUCT USED FOR UNKNOWN INDICATION
     Route: 048
  36. ONDANSETRON [Suspect]
     Active Substance: ONDANSETRON
     Dosage: SUPPORTIVE MEDICATION BEFORE CHEMO
     Route: 048
     Dates: start: 20170221
  37. PEGFILGRASTIM [Suspect]
     Active Substance: PEGFILGRASTIM
     Route: 058
     Dates: start: 20170208
  38. PANTOPRAZOLE [Suspect]
     Active Substance: PANTOPRAZOLE
     Indication: PRODUCT USED FOR UNKNOWN INDICATION
     Route: 048
     Dates: start: 20170201
  39. PROCYTOX (CYCLOPHOSPHAMIDE) 2000MG/VIAL [Suspect]
     Active Substance: CYCLOPHOSPHAMIDE
     Route: 042
     Dates: start: 20170123
  40. APREPITANT. [Suspect]
     Active Substance: APREPITANT
     Dosage: BEFORE CYCLOPHOSPHAMIDE AND DOXORUBICIN TREATMENT
     Route: 048
     Dates: start: 20170221
  41. APREPITANT. [Suspect]
     Active Substance: APREPITANT
     Route: 048
     Dates: start: 20170207, end: 20170208
  42. DEXAMETHASONE. [Concomitant]
     Active Substance: DEXAMETHASONE
     Route: 048
     Dates: start: 20170423, end: 20170424
  43. APREPITANT. [Suspect]
     Active Substance: APREPITANT
     Dosage: BEFORE CYCLOPHOSPHAMIDE AND DOXORUBICIN TREATMENT
     Route: 048
     Dates: start: 20170123
  44. PEGFILGRASTIM [Suspect]
     Active Substance: PEGFILGRASTIM
     Indication: SUPPORTIVE CARE
     Route: 058
     Dates: start: 20170111
  45. PEGFILGRASTIM [Suspect]
     Active Substance: PEGFILGRASTIM
     Route: 058
     Dates: start: 20170125
  46. METOCLOPRAMIDE. [Suspect]
     Active Substance: METOCLOPRAMIDE
     Indication: PRODUCT USED FOR UNKNOWN INDICATION
     Route: 048
     Dates: start: 20170221
  47. PACLITAXEL. [Concomitant]
     Active Substance: PACLITAXEL
     Indication: BREAST CANCER
     Route: 065
     Dates: start: 20170327
  48. GABAPENTIN. [Concomitant]
     Active Substance: GABAPENTIN
     Indication: PRODUCT USED FOR UNKNOWN INDICATION
     Dosage: DOSE: 300-600 MG; FREQUENCY: TID (THREE TIMES A DAY)
     Route: 048

REACTIONS (8)
  - Gastrointestinal disorder [Recovering/Resolving]
  - Respiratory failure [Unknown]
  - Dyspnoea [Recovering/Resolving]
  - Asthenia [Recovering/Resolving]
  - Nausea [Recovering/Resolving]
  - Decreased appetite [Unknown]
  - Atelectasis [Unknown]
  - Respiratory syncytial virus infection [Unknown]

NARRATIVE: CASE EVENT DATE: 20170221
